FAERS Safety Report 23176014 (Version 1)
Quarter: 2023Q4

REPORT INFORMATION
  Report Type: Spontaneous
  Country: US (occurrence: US)
  Receive Date: 20231113
  Receipt Date: 20231113
  Transmission Date: 20240110
  Serious: No
  Sender: FDA-Public Use
  Company Number: US-BRISTOL-MYERS SQUIBB COMPANY-2023-154313

PATIENT
  Age: 89 Year
  Sex: Male

DRUGS (1)
  1. REBLOZYL [Suspect]
     Active Substance: LUSPATERCEPT-AAMT
     Indication: Acute erythroid leukaemia
     Dosage: DOSE : 1 MG/KG;     FREQ : EVERY 3 WEEKS
     Route: 058

REACTIONS (2)
  - Dizziness [Unknown]
  - Headache [Unknown]
